FAERS Safety Report 4764227-1 (Version None)
Quarter: 2005Q3

REPORT INFORMATION
  Report Type: 
  Country: None (occurrence: None)
  Receive Date: 20050907
  Receipt Date: 20050907
  Transmission Date: 20060218
  Serious: Yes (Death)
  Sender: FDA-Public Use
  Company Number: None

PATIENT
  Age: 71 Year
  Sex: Male
  Weight: 81.6475 kg

DRUGS (1)
  1. CAMPRAL [Suspect]
     Indication: ALCOHOLISM
     Dosage: 1 TABLET 3X PER DAY PO
     Route: 048
     Dates: start: 20050628, end: 20050729

REACTIONS (2)
  - COMPLETED SUICIDE [None]
  - FEELING ABNORMAL [None]
